FAERS Safety Report 7293464-X (Version None)
Quarter: 2011Q1

REPORT INFORMATION
  Report Type: 
  Country: None (occurrence: None)
  Receive Date: 20110215
  Receipt Date: 20110209
  Transmission Date: 20110831
  Serious: No
  Sender: FDA-Public Use
  Company Number: US-PFIZER INC-2011029070

PATIENT
  Age: 32 Year
  Sex: Female

DRUGS (1)
  1. DEPO-PROVERA [Suspect]

REACTIONS (3)
  - BONE DENSITY DECREASED [None]
  - JAW DISORDER [None]
  - TOOTH DISORDER [None]
